FAERS Safety Report 9750985 (Version 1)
Quarter: 2013Q4

REPORT INFORMATION
  Report Type: Spontaneous
  Country: US (occurrence: US)
  Receive Date: 20131212
  Receipt Date: 20131212
  Transmission Date: 20140711
  Serious: No
  Sender: FDA-Public Use
  Company Number: US-TEVA-400246USA

PATIENT
  Age: 29 Year
  Sex: Female
  Weight: 57.66 kg

DRUGS (3)
  1. PARAGARD 380A [Suspect]
     Indication: CONTRACEPTION
     Route: 015
     Dates: start: 20130205
  2. VICODIN [Concomitant]
     Indication: BACK PAIN
  3. MUSCLE RELAXERS [Concomitant]
     Indication: BACK PAIN

REACTIONS (1)
  - Metrorrhagia [Not Recovered/Not Resolved]
